FAERS Safety Report 8840692 (Version 2)
Quarter: 2015Q2

REPORT INFORMATION
  Report Type: Report from Study
  Country: US (occurrence: US)
  Receive Date: 20121015
  Receipt Date: 20150409
  Transmission Date: 20150821
  Serious: Yes (Other)
  Sender: FDA-Public Use
  Company Number: US-ROCHE-1141653

PATIENT
  Age: 3 Year
  Sex: Female
  Weight: 11.35 kg

DRUGS (5)
  1. NUTROPIN AQ [Suspect]
     Active Substance: SOMATROPIN
     Route: 058
  2. GLUCAGEN [Concomitant]
     Active Substance: GLUCAGON HYDROCHLORIDE
  3. NUTROPIN AQ [Suspect]
     Active Substance: SOMATROPIN
     Indication: GROWTH HORMONE DEFICIENCY
     Dosage: 0.1 ML
     Route: 058
  4. NUTROPIN AQ [Suspect]
     Active Substance: SOMATROPIN
     Route: 058
  5. CLONIDINE. [Concomitant]
     Active Substance: CLONIDINE
     Route: 048

REACTIONS (7)
  - Scoliosis [Recovering/Resolving]
  - Blood glucose decreased [Unknown]
  - Pneumonia [Unknown]
  - Rales [Unknown]
  - Nasal congestion [Unknown]
  - Drug dose omission [Unknown]
  - Dysmorphism [Recovering/Resolving]

NARRATIVE: CASE EVENT DATE: 20011217
